FAERS Safety Report 22102369 (Version 2)
Quarter: 2023Q1

REPORT INFORMATION
  Report Type: Report from Study
  Country: EG (occurrence: EG)
  Receive Date: 20230316
  Receipt Date: 20230328
  Transmission Date: 20230418
  Serious: Yes (Other)
  Sender: FDA-Public Use
  Company Number: EG-002147023-NVSC2023EG054329

PATIENT
  Sex: Female

DRUGS (7)
  1. GLIVEC [Suspect]
     Active Substance: IMATINIB MESYLATE
     Indication: Chronic myeloid leukaemia
     Dosage: 400 MG, QD (1 TABLET\DAY)
     Route: 048
     Dates: end: 20230308
  2. GLIVEC [Suspect]
     Active Substance: IMATINIB MESYLATE
     Dosage: 3 DOSAGE FORM, QW (START 3 MONTHS AGO)
     Route: 048
     Dates: end: 20230308
  3. SOLUPRED [Concomitant]
     Indication: Lupus-like syndrome
     Dosage: 20 MG
     Route: 048
  4. SOLUPRED [Concomitant]
     Dosage: 1 DOSAGE FORM, QD (IN THE MORNING, IT WAS BEING TAKEN BEFORE 7YEARS AGO AND STOPPED)
     Route: 065
  5. LEVOTHYROXINE [Concomitant]
     Active Substance: LEVOTHYROXINE
     Indication: Hypothyroidism
     Dosage: 1 DOSAGE FORM, QD  (STRENGHT- 50 MCG )(IN THE MORNING ON EMPTY STOMACH)  DAILY DOSE ONE TAB DAILY IN
     Route: 048
  6. ASPIRIN [Concomitant]
     Active Substance: ASPIRIN
     Indication: Product used for unknown indication
     Dosage: 2 DOSAGE FORM, QD, (STARTED 2 MONTHS AGO)
     Route: 065
  7. CYCLOPHOSPHAMIDE [Concomitant]
     Active Substance: CYCLOPHOSPHAMIDE
     Indication: Product used for unknown indication
     Dosage: 2 DOSAGE FORM, QD (50  TABLETS) (START: 2 MONTHS AGO)
     Route: 048

REACTIONS (10)
  - White blood cell count decreased [Recovered/Resolved]
  - Red blood cell count decreased [Unknown]
  - Dermatitis allergic [Recovered/Resolved]
  - General physical condition abnormal [Recovering/Resolving]
  - Pain [Not Recovered/Not Resolved]
  - White blood cell count increased [Recovered/Resolved]
  - Blood pressure fluctuation [Not Recovered/Not Resolved]
  - Fatigue [Not Recovered/Not Resolved]
  - Headache [Not Recovered/Not Resolved]
  - Product dose omission issue [Not Recovered/Not Resolved]

NARRATIVE: CASE EVENT DATE: 20220101
